FAERS Safety Report 7333151-2 (Version None)
Quarter: 2011Q1

REPORT INFORMATION
  Report Type: 
  Country: None (occurrence: None)
  Receive Date: 20110304
  Receipt Date: 20110216
  Transmission Date: 20110831
  Serious: Yes (Hospitalization, Other)
  Sender: FDA-Public Use
  Company Number: JP-BAYER-200812902BYL

PATIENT
  Age: 59 Year
  Sex: Male
  Weight: 59 kg

DRUGS (10)
  1. NEXAVAR [Suspect]
     Dosage: DAILY DOSE 400 MG
     Route: 048
     Dates: start: 20080902, end: 20081127
  2. HIRUDOID [Concomitant]
     Dosage: UNK
     Route: 061
     Dates: start: 20080722, end: 20081106
  3. ZOMETA [Concomitant]
     Dosage: DAILY DOSE 4 MG
     Route: 041
     Dates: start: 20080807, end: 20080807
  4. LAC B [Concomitant]
     Dosage: DAILY DOSE 3 G
     Route: 048
     Dates: start: 20081024, end: 20081106
  5. RINDERON-VG [Concomitant]
     Indication: SKIN ULCER
     Dosage: UNK
     Route: 061
     Dates: start: 20080821
  6. NEXAVAR [Suspect]
     Dosage: DAILY DOSE 400 MG
     Route: 048
     Dates: start: 20080801, end: 20080820
  7. ZOMETA [Concomitant]
     Indication: METASTASES TO BONE
     Dosage: DAILY DOSE 4 MG
     Route: 041
     Dates: start: 20080725, end: 20080725
  8. NEXAVAR [Suspect]
     Indication: RENAL CELL CARCINOMA STAGE IV
     Dosage: DAILY DOSE 800 MG
     Route: 048
     Dates: start: 20080708, end: 20080731
  9. LOPEMIN [Concomitant]
     Dosage: DAILY DOSE 2 MG
     Route: 048
     Dates: start: 20081024, end: 20090706
  10. NEXAVAR [Suspect]
     Dosage: UNK UNK, UNK
     Route: 048
     Dates: start: 20081201

REACTIONS (10)
  - HYPERTENSION [None]
  - RADIATION SKIN INJURY [None]
  - ALANINE AMINOTRANSFERASE INCREASED [None]
  - DIARRHOEA [None]
  - MELAENA [None]
  - BLOOD AMYLASE INCREASED [None]
  - ALOPECIA [None]
  - HEPATIC FUNCTION ABNORMAL [None]
  - RASH [None]
  - ASPARTATE AMINOTRANSFERASE INCREASED [None]
